FAERS Safety Report 21999285 (Version 1)
Quarter: 2023Q1

REPORT INFORMATION
  Report Type: Spontaneous
  Country: CO (occurrence: CO)
  Receive Date: 20230216
  Receipt Date: 20230216
  Transmission Date: 20230418
  Serious: Yes (Hospitalization)
  Sender: FDA-Public Use
  Company Number: CO-MYLANLABS-2023M1017119

PATIENT
  Age: 64 Year
  Sex: Male

DRUGS (10)
  1. ABACAVIR [Suspect]
     Active Substance: ABACAVIR
     Indication: Atypical haemolytic uraemic syndrome
     Dosage: 300 MILLIGRAM, EVERY 12 HOURS
     Route: 065
  2. ABACAVIR [Suspect]
     Active Substance: ABACAVIR
     Indication: HIV infection
  3. LAMIVUDINE [Suspect]
     Active Substance: LAMIVUDINE
     Indication: Atypical haemolytic uraemic syndrome
     Dosage: 150 MILLIGRAM, EVERY 12 HOURS
     Route: 065
  4. LAMIVUDINE [Suspect]
     Active Substance: LAMIVUDINE
     Indication: HIV infection
  5. DOLUTEGRAVIR [Suspect]
     Active Substance: DOLUTEGRAVIR
     Indication: Atypical haemolytic uraemic syndrome
     Dosage: 50 MILLIGRAM, QD
     Route: 065
  6. DOLUTEGRAVIR [Suspect]
     Active Substance: DOLUTEGRAVIR
     Indication: HIV infection
  7. METRONIDAZOLE [Concomitant]
     Active Substance: METRONIDAZOLE
     Indication: Evidence based treatment
     Dosage: UNK
     Route: 065
  8. AMPICILLIN SODIUM\SULBACTAM SODIUM [Concomitant]
     Active Substance: AMPICILLIN SODIUM\SULBACTAM SODIUM
     Indication: Evidence based treatment
     Dosage: UNK
     Route: 065
  9. AMPHOTERICIN B [Concomitant]
     Active Substance: AMPHOTERICIN B
     Indication: Evidence based treatment
     Dosage: UNK
     Route: 065
  10. GANCICLOVIR [Concomitant]
     Active Substance: GANCICLOVIR
     Indication: Cytomegalovirus infection
     Dosage: UNK
     Route: 065

REACTIONS (1)
  - Drug ineffective [Unknown]
